FAERS Safety Report 19766988 (Version 1)
Quarter: 2021Q3

REPORT INFORMATION
  Report Type: Spontaneous
  Country: US (occurrence: US)
  Receive Date: 20210830
  Receipt Date: 20210830
  Transmission Date: 20211014
  Serious: No
  Sender: FDA-Public Use
  Company Number: None

PATIENT
  Age: 70 Year
  Sex: Female
  Weight: 90 kg

DRUGS (8)
  1. CHOLESTYROMENE [Concomitant]
  2. VITAMIN C [Concomitant]
     Active Substance: ASCORBIC ACID
  3. CINSULIN [Concomitant]
  4. VITAMIN D3 [Concomitant]
     Active Substance: CHOLECALCIFEROL
  5. RAMIPRIL. [Concomitant]
     Active Substance: RAMIPRIL
  6. ESTRADIOL. [Concomitant]
     Active Substance: ESTRADIOL
  7. VITAMIN B12 [Concomitant]
     Active Substance: CYANOCOBALAMIN
  8. ESTRADIOL VAGINAL INSERT USP 10MCG [Suspect]
     Active Substance: ESTRADIOL
     Indication: CONTRACEPTION
     Route: 067
     Dates: start: 20180101

REACTIONS (2)
  - Device difficult to use [None]
  - Haemorrhage [None]

NARRATIVE: CASE EVENT DATE: 20210809
